FAERS Safety Report 9467478 (Version 3)
Quarter: 2014Q2

REPORT INFORMATION
  Report Type: Spontaneous
  Country: GB (occurrence: GB)
  Receive Date: 20130821
  Receipt Date: 20140414
  Transmission Date: 20141212
  Serious: Yes (Hospitalization, Other)
  Sender: FDA-Public Use
  Company Number: GB-ACCORD-018947

PATIENT
  Age: 53 Year
  Sex: Female

DRUGS (16)
  1. MYCOPHENOLIC ACID [Suspect]
     Indication: SYSTEMIC LUPUS ERYTHEMATOSUS
     Route: 048
     Dates: end: 20130215
  2. IRON [Concomitant]
     Indication: ANAEMIA
     Route: 048
  3. LOSARTAN [Concomitant]
     Indication: HYPERTENSION
     Dosage: 50 MG PER DAY
  4. PARACETAMOL [Concomitant]
     Indication: ARTHRALGIA
  5. PREDNISONE [Concomitant]
     Indication: SYSTEMIC LUPUS ERYTHEMATOSUS
     Route: 048
  6. KEPPRA [Concomitant]
     Indication: SYSTEMIC LUPUS ERYTHEMATOSUS
     Dosage: 1250 MG TWICE PER DAY
     Route: 048
  7. FUROSEMIDE [Concomitant]
  8. BELIMUMAB [Suspect]
     Indication: SYSTEMIC LUPUS ERYTHEMATOSUS
     Route: 042
     Dates: start: 20120208
  9. OROTATE COPPER/OROTIC ACID/POTASSIUM OROTATE [Concomitant]
     Indication: ANAEMIA
  10. LANSOPRAZOLE [Concomitant]
     Indication: DYSPEPSIA
     Dosage: 30 MG TWICE PER DAY
  11. ACETYLSALICYLIC ACID [Concomitant]
     Indication: ANTIPHOSPHOLIPID SYNDROME
     Dosage: 150 MG PER DAY
  12. CALCIUM CARBONATE/COLECALCIFEROL [Concomitant]
  13. PREDNISOLONE [Concomitant]
  14. GABAPENTIN [Concomitant]
     Indication: EPILEPSY
     Dosage: 600 MG THREE TIMES PER DAY
  15. ALENDRONIC ACID [Concomitant]
     Indication: OSTEOPOROSIS PROPHYLAXIS
     Route: 048
  16. HYDROXYCHLOROQUINE [Concomitant]
     Indication: SYSTEMIC LUPUS ERYTHEMATOSUS
     Dosage: 200 MG PER DAY
     Route: 048

REACTIONS (9)
  - Liver function test abnormal [Recovered/Resolved]
  - Pyrexia [Recovered/Resolved]
  - Infection [Recovered/Resolved]
  - C-reactive protein increased [Recovered/Resolved]
  - Off label use [Unknown]
  - SLE arthritis [Recovered/Resolved]
  - Febrile neutropenia [Unknown]
  - Pleuritic pain [Unknown]
  - Neutropenia [Recovered/Resolved]
